FAERS Safety Report 5280159-7 (Version None)
Quarter: 2007Q1

REPORT INFORMATION
  Report Type: 
  Country: None (occurrence: None)
  Receive Date: 20070326
  Receipt Date: 20070326
  Transmission Date: 20070707
  Serious: Yes (Other)
  Sender: FDA-Public Use
  Company Number: None

PATIENT
  Age: 55 Year
  Sex: Female
  Weight: 72.5755 kg

DRUGS (2)
  1. XOPENEX [Suspect]
     Indication: CHRONIC OBSTRUCTIVE PULMONARY DISEASE
     Dosage: 2 PUFFS ONCE PO
     Route: 048
     Dates: start: 20061212, end: 20061212
  2. FLOVENT [Suspect]
     Indication: CHRONIC OBSTRUCTIVE PULMONARY DISEASE
     Dosage: 2 PUFFS TWICE DAILY PO
     Route: 048
     Dates: start: 20051013, end: 20051017

REACTIONS (5)
  - ALOPECIA [None]
  - FORMICATION [None]
  - PAIN [None]
  - PRURITUS [None]
  - TRICHORRHEXIS [None]
